FAERS Safety Report 6217515-6 (Version None)
Quarter: 2009Q2

REPORT INFORMATION
  Report Type: 
  Country: None (occurrence: None)
  Receive Date: 20090608
  Receipt Date: 20081229
  Transmission Date: 20091009
  Serious: No
  Sender: FDA-Public Use
  Company Number: A0761898A

PATIENT
  Age: 56 Year
  Sex: Male

DRUGS (2)
  1. WELLBUTRIN XL [Suspect]
     Indication: ANXIETY
     Dosage: 150MG VARIABLE DOSE
     Route: 048
     Dates: start: 20030101, end: 20070501
  2. NO CONCURRENT MEDICATION [Concomitant]

REACTIONS (3)
  - EYE PAIN [None]
  - INSOMNIA [None]
  - POLLAKIURIA [None]
